FAERS Safety Report 5604488-X (Version None)
Quarter: 2008Q1

REPORT INFORMATION
  Report Type: 
  Country: None (occurrence: None)
  Receive Date: 20080128
  Receipt Date: 20080114
  Transmission Date: 20080703
  Serious: Yes (Life-Threatening)
  Sender: FDA-Public Use
  Company Number: DE-ROCHE-541585

PATIENT
  Age: 75 Year
  Sex: Female

DRUGS (33)
  1. CEFTRIAXONE SODIUM [Suspect]
     Indication: INFECTION
     Dosage: REPORTED AS ROCEPHIN INJLSJ 2G
     Route: 042
     Dates: start: 20040910, end: 20040910
  2. DIAZEPAM [Suspect]
     Indication: SLEEP DISORDER THERAPY
     Route: 048
     Dates: start: 20040817, end: 20040817
  3. DIAZEPAM [Suspect]
     Dosage: REPORTED AS DIAZEPAM 10MG 5MG
     Route: 048
     Dates: start: 20040912, end: 20040912
  4. MIDAZOLAM HCL [Suspect]
     Indication: PREMEDICATION
     Dosage: REPORTED AS DORMICUM INJLSJ 7.5MG 5MG
     Route: 042
     Dates: start: 20040819, end: 20040819
  5. MIDAZOLAM HCL [Suspect]
     Dosage: REPORTED AS DORMICUM INJLSJ 7.5MG 5MG
     Route: 042
     Dates: start: 20040830, end: 20040830
  6. MIDAZOLAM HCL [Suspect]
     Dosage: REPORTED AS MIDAZOLAM INJLSJ 5MG
     Route: 042
     Dates: start: 20040902, end: 20040902
  7. MIDAZOLAM HCL [Suspect]
     Dosage: REPORTED AS DORMICUM INJLSJ 7.5MG 5MG
     Route: 042
     Dates: start: 20040910, end: 20040910
  8. OXAZEPAM [Suspect]
     Indication: SEDATION
     Dosage: REPORTED AS OXAZEPAM 10MG
     Route: 048
     Dates: start: 20040818, end: 20040818
  9. OXAZEPAM [Suspect]
     Route: 048
     Dates: start: 20040824, end: 20040824
  10. OXAZEPAM [Suspect]
     Route: 048
     Dates: start: 20040830, end: 20040912
  11. CAPTOPRIL [Suspect]
     Indication: HYPERTENSION
     Dosage: REPORTED AS CAPTOPRIL 0-0-1
     Route: 048
     Dates: start: 20040819
  12. LOPIRIN [Suspect]
     Indication: HYPERTENSION
     Dosage: REPORTED AS LOPIRIN COR 1 TBL
     Route: 048
     Dates: start: 20040819, end: 20040911
  13. CIPRO [Suspect]
     Dosage: REPORTED AS CIPROBAY 500MG 1-0-1
     Route: 048
     Dates: start: 20040823, end: 20040831
  14. BISOPROLOL FUMARATE [Suspect]
     Indication: HYPERTENSION
     Dosage: REPORTED AS CONCOR 2.5MG 1-0-0
     Route: 048
     Dates: start: 20040823, end: 20040901
  15. DELIX PLUS [Suspect]
     Indication: HYPERTENSION
     Dosage: REPORTED AS DELIX PLUS 2.5MG 0-0-1
     Route: 048
     Dates: start: 20040823, end: 20040907
  16. DELIX PLUS [Suspect]
     Route: 048
     Dates: start: 20040910
  17. OMEPRAZOLE [Suspect]
     Indication: PROPHYLAXIS
     Dosage: REPORTED AS OMEPRAZOL 1-0-0 1-0-1
     Route: 048
     Dates: start: 20040825
  18. NOVALGIN [Suspect]
     Indication: PAIN
     Dosage: DRUG REPORTED AS NOVALGIN TROPFEN 20 DEGREES
     Route: 048
     Dates: start: 20040830, end: 20040902
  19. REFOBACIN [Suspect]
     Dosage: REPORTED AS REFOBACIN INJLSJ 3X80 MG
     Route: 042
     Dates: start: 20040830, end: 20040902
  20. VANCOMYCIN [Suspect]
     Dosage: REPORTED AS VANCOMYCIN INJLSJ 1X1G
     Route: 042
     Dates: start: 20040830, end: 20040905
  21. VANCOMYCIN [Suspect]
     Route: 042
     Dates: start: 20040907, end: 20040907
  22. PROPOFOL [Suspect]
     Indication: ARRHYTHMIA
     Dosage: REPORTED AS PROPOFOL INJLSJ 1X30MG
     Route: 042
     Dates: start: 20040902, end: 20040902
  23. ATROPIN [Suspect]
     Indication: ARRHYTHMIA
     Dosage: REPORTED AS ATROPIN INJLSJ 1 AMP
     Route: 042
     Dates: start: 20040902, end: 20040902
  24. ACTRAPID [Suspect]
     Indication: HYPERGLYCAEMIA
     Dosage: REPORTED AS ACTRAPID INJLSJ S.C.
     Route: 058
     Dates: start: 20040904, end: 20040906
  25. FURORESE [Suspect]
     Indication: PLEURAL EFFUSION
     Dosage: REPORTED AS FURORESE INJLSJ 1X40 MG
     Route: 042
     Dates: start: 20040906, end: 20040911
  26. NITROGLYCERIN [Suspect]
     Indication: HYPERTENSION
     Dosage: REPORTED AS NITRO INJLSJ 50MG
     Route: 042
     Dates: start: 20040907, end: 20040911
  27. CEFTRIAXON [Suspect]
     Indication: INFECTION
     Dosage: REPORTED AS CEFTRIAXON INJLSJ 2G
     Route: 042
     Dates: start: 20040910, end: 20040910
  28. METOHEXAL [Suspect]
     Indication: HYPERTENSION
     Dosage: REPORTED AS METOHEXAL 25MG 1-1-1
     Route: 048
     Dates: start: 20040912
  29. PARACETAMOL [Concomitant]
     Indication: PAIN
     Route: 048
  30. PARACETAMOL [Concomitant]
     Dosage: DRUG REPORTED AS PARACETAMOL SAFT 1X15ML
     Route: 048
     Dates: start: 20040816, end: 20040816
  31. ACETAMINOPHEN [Concomitant]
     Indication: PAIN
  32. ACETAMINOPHEN [Concomitant]
     Dates: start: 20040819, end: 20040821
  33. PERENTEROL [Concomitant]
     Indication: DIARRHOEA
     Dosage: DRUG REPORTED AS PENTEROL KPS 2-2-2
     Route: 048
     Dates: start: 20040816, end: 20040817

REACTIONS (1)
  - STEVENS-JOHNSON SYNDROME [None]
